FAERS Safety Report 7236276-5 (Version None)
Quarter: 2011Q1

REPORT INFORMATION
  Report Type: 
  Country: None (occurrence: None)
  Receive Date: 20110120
  Receipt Date: 20110114
  Transmission Date: 20110831
  Serious: Yes (Hospitalization, Disabling, Other)
  Sender: FDA-Public Use
  Company Number: US-MERCK-1101USA00949

PATIENT
  Age: 63 Year
  Sex: Female
  Weight: 92 kg

DRUGS (4)
  1. LEVAQUIN [Interacting]
     Route: 065
  2. DULERA TABLET [Concomitant]
     Indication: ASTHMA
     Route: 048
  3. ZETIA [Suspect]
     Route: 048
  4. DULERA TABLET [Concomitant]
     Indication: SINUSITIS
     Route: 048

REACTIONS (2)
  - MYALGIA [None]
  - DRUG INTERACTION [None]
